FAERS Safety Report 13327062 (Version 1)
Quarter: 2017Q1

REPORT INFORMATION
  Report Type: Spontaneous
  Country: US (occurrence: US)
  Receive Date: 20170313
  Receipt Date: 20170313
  Transmission Date: 20170428
  Serious: No
  Sender: FDA-Public Use
  Company Number: US-TEVA-746811ACC

PATIENT
  Age: 69 Year
  Sex: Female

DRUGS (3)
  1. BUMEX [Concomitant]
     Active Substance: BUMETANIDE
  2. COPAXONE [Suspect]
     Active Substance: GLATIRAMER ACETATE
     Indication: MULTIPLE SCLEROSIS
     Route: 058
     Dates: start: 20160315
  3. COREG [Concomitant]
     Active Substance: CARVEDILOL

REACTIONS (1)
  - Injection site reaction [Unknown]

NARRATIVE: CASE EVENT DATE: 201702
